FAERS Safety Report 7681290-9 (Version None)
Quarter: 2011Q3

REPORT INFORMATION
  Report Type: 
  Country: None (occurrence: None)
  Receive Date: 20110812
  Receipt Date: 20110811
  Transmission Date: 20111222
  Serious: Yes (Hospitalization)
  Sender: FDA-Public Use
  Company Number: DE-ABBOTT-11P-062-0845556-00

PATIENT
  Sex: Female

DRUGS (7)
  1. METRONIDAZOLE [Concomitant]
     Indication: PRODUCT USED FOR UNKNOWN INDICATION
     Route: 048
  2. PENTASA [Concomitant]
     Indication: PRODUCT USED FOR UNKNOWN INDICATION
  3. MUCOFALK [Concomitant]
     Indication: PRODUCT USED FOR UNKNOWN INDICATION
  4. PERENTEROL [Concomitant]
     Indication: PRODUCT USED FOR UNKNOWN INDICATION
  5. HUMIRA [Suspect]
     Indication: CROHN'S DISEASE
     Route: 058
     Dates: start: 20090521, end: 20110701
  6. AZATHIOPRIN [Concomitant]
     Indication: PRODUCT USED FOR UNKNOWN INDICATION
  7. ORAL ANTICONTRACEPTIVE [Concomitant]
     Indication: PRODUCT USED FOR UNKNOWN INDICATION
     Route: 048

REACTIONS (2)
  - ANAL ABSCESS [None]
  - ANAL FISTULA [None]
